FAERS Safety Report 5886112-4 (Version None)
Quarter: 2008Q3

REPORT INFORMATION
  Report Type: 
  Country: None (occurrence: None)
  Receive Date: 20080917
  Receipt Date: 20080910
  Transmission Date: 20090109
  Serious: Yes (Hospitalization)
  Sender: FDA-Public Use
  Company Number: US-WATSON-2008-05262

PATIENT
  Sex: Male

DRUGS (1)
  1. FENTANYL-75 (WATSON LABORATORIES) [Suspect]
     Indication: PAIN
     Dosage: 1 PATCH, Q 72 HOURS
     Route: 062
     Dates: start: 20080821

REACTIONS (3)
  - EUPHORIC MOOD [None]
  - GASTRIC ULCER HAEMORRHAGE [None]
  - ROAD TRAFFIC ACCIDENT [None]
